FAERS Safety Report 8203837-6 (Version None)
Quarter: 2012Q1

REPORT INFORMATION
  Report Type: 
  Country: None (occurrence: None)
  Receive Date: 20120227
  Receipt Date: 20111116
  Transmission Date: 20120608
  Serious: No
  Sender: FDA-Public Use
  Company Number: 340863

PATIENT
  Sex: Female

DRUGS (2)
  1. VICTOZA [Suspect]
     Indication: DIABETES MELLITUS
     Dosage: 1.2 MG, QD, SUBCUTANEOUS
     Route: 058
  2. METFORMIN HYDROCHLORIDE [Concomitant]

REACTIONS (2)
  - WEIGHT DECREASED [None]
  - INJECTION SITE HAEMATOMA [None]
